FAERS Safety Report 21646938 (Version 2)
Quarter: 2022Q4

REPORT INFORMATION
  Report Type: Spontaneous
  Country: US (occurrence: US)
  Receive Date: 20221127
  Receipt Date: 20221215
  Transmission Date: 20230112
  Serious: Yes (Other)
  Sender: FDA-Public Use
  Company Number: US-TEVA-2022-US-2827927

PATIENT
  Age: 52 Year
  Sex: Female

DRUGS (3)
  1. IMATINIB [Suspect]
     Active Substance: IMATINIB
     Indication: Gastrointestinal stromal tumour
     Route: 065
     Dates: end: 2017
  2. SUNITINIB [Suspect]
     Active Substance: SUNITINIB
     Indication: Gastrointestinal stromal tumour
     Route: 065
     Dates: start: 2020
  3. RIPRETINIB [Concomitant]
     Active Substance: RIPRETINIB
     Indication: Gastrointestinal stromal tumour
     Route: 065
     Dates: start: 2017

REACTIONS (1)
  - Drug resistance [Unknown]
